FAERS Safety Report 20654347 (Version 1)
Quarter: 2022Q1

REPORT INFORMATION
  Report Type: Spontaneous
  Country: FR (occurrence: FR)
  Receive Date: 20220330
  Receipt Date: 20220330
  Transmission Date: 20220423
  Serious: Yes (Other)
  Sender: FDA-Public Use
  Company Number: FR-NOVARTISPH-NVSC2022FR071715

PATIENT
  Age: 73 Year
  Sex: Female

DRUGS (3)
  1. EXFORGE [Suspect]
     Active Substance: AMLODIPINE BESYLATE\VALSARTAN
     Indication: Blood pressure abnormal
     Dosage: 10 MG/160 MG, QD
     Route: 065
     Dates: start: 2020
  2. TITANOREINE [Suspect]
     Active Substance: CARRAGEENAN\TITANIUM\ZINC
     Indication: Colitis ulcerative
     Dosage: UNK
     Route: 065
     Dates: start: 20220324
  3. TITANOREINE [Suspect]
     Active Substance: CARRAGEENAN\TITANIUM\ZINC
     Indication: Haemorrhoids

REACTIONS (3)
  - Colitis ulcerative [Not Recovered/Not Resolved]
  - Haemorrhoids [Not Recovered/Not Resolved]
  - Malaise [Not Recovered/Not Resolved]

NARRATIVE: CASE EVENT DATE: 20220325
